FAERS Safety Report 4501259-2 (Version None)
Quarter: 2004Q4

REPORT INFORMATION
  Report Type: 
  Country: None (occurrence: None)
  Receive Date: 20040927
  Receipt Date: 20040722
  Transmission Date: 20050328
  Serious: No
  Sender: FDA-Public Use
  Company Number: USA030434748

PATIENT
  Age: 8 Year
  Sex: Female
  Weight: 29.9374 kg

DRUGS (4)
  1. STRATTERA [Suspect]
     Indication: ATTENTION DEFICIT/HYPERACTIVITY DISORDER
     Dosage: 36 MG
     Dates: start: 20030417
  2. DEXTRO AMPHETAMINE SULFATE TAB [Concomitant]
  3. ZYRTEC [Concomitant]
  4. BENADRYL (DIPHENYDRAMINE HYDROCHLORIDE) [Concomitant]

REACTIONS (12)
  - AGGRESSION [None]
  - CONSTIPATION [None]
  - CRYING [None]
  - DEPRESSED MOOD [None]
  - DISTURBANCE IN ATTENTION [None]
  - EPISTAXIS [None]
  - FATIGUE [None]
  - FEELING ABNORMAL [None]
  - OBSESSIVE THOUGHTS [None]
  - PSYCHOMOTOR HYPERACTIVITY [None]
  - RETCHING [None]
  - VOMITING [None]
